FAERS Safety Report 8914898 (Version 1)
Quarter: 2012Q4

REPORT INFORMATION
  Report Type: 
  Country: DE (occurrence: DE)
  Receive Date: 20121116
  Receipt Date: 20121116
  Transmission Date: 20130627
  Serious: Yes (Other)
  Sender: FDA-Public Use
  Company Number: DE-GILEAD-2012-0064671

PATIENT
  Age: 25 Year
  Sex: Male

DRUGS (1)
  1. VIREAD [Suspect]
     Indication: CHRONIC HEPATITIS B

REACTIONS (1)
  - Genotype drug resistance test positive [Unknown]
